FAERS Safety Report 9848579 (Version 1)
Quarter: 2013Q4

REPORT INFORMATION
  Report Type: Spontaneous
  Country: US (occurrence: None)
  Receive Date: 20131224
  Receipt Date: 20131224
  Transmission Date: 20140711
  Serious: Yes (Other)
  Sender: FDA-Public Use
  Company Number: PHEH2013US023763

PATIENT
  Age: 91 Year
  Sex: 0

DRUGS (2)
  1. AFINITOR (RAD) UNKNOWN [Suspect]
  2. AROMASIN (EXEMESTANE) [Suspect]

REACTIONS (1)
  - Anaphylactic reaction [None]
